FAERS Safety Report 14710978 (Version 1)
Quarter: 2018Q2

REPORT INFORMATION
  Report Type: Spontaneous
  Country: US (occurrence: US)
  Receive Date: 20180403
  Receipt Date: 20180403
  Transmission Date: 20180711
  Serious: Yes (Hospitalization, Other)
  Sender: FDA-Public Use
  Company Number: US-JAZZ-2018-US-005394

PATIENT
  Age: 49 Year
  Sex: Female

DRUGS (12)
  1. CLOZAPINE. [Suspect]
     Active Substance: CLOZAPINE
     Dosage: 150 UNK, UNK
     Route: 048
  2. CLOZAPINE. [Suspect]
     Active Substance: CLOZAPINE
     Dosage: 300 UNK, UNK
     Route: 048
  3. CLOZAPINE. [Suspect]
     Active Substance: CLOZAPINE
     Dosage: 100 UNK, UNK
     Route: 048
  4. CLOZAPINE. [Suspect]
     Active Substance: CLOZAPINE
     Dosage: 200 UNK, UNK
     Route: 048
  5. VALPROIC ACID. [Suspect]
     Active Substance: VALPROIC ACID
     Dosage: 500 MG, UNK
  6. RISPERIDONE. [Suspect]
     Active Substance: RISPERIDONE
     Indication: SCHIZOAFFECTIVE DISORDER
     Dosage: 50 MG, UNK
     Route: 030
  7. CLOZAPINE. [Suspect]
     Active Substance: CLOZAPINE
     Dosage: 50 UNK, UNK
     Route: 048
  8. CLOZAPINE. [Suspect]
     Active Substance: CLOZAPINE
     Dosage: 400 UNK, UNK
     Route: 048
  9. CLOZAPINE. [Suspect]
     Active Substance: CLOZAPINE
     Dosage: 50 UNK, UNK
     Route: 048
  10. RISPERIDONE. [Suspect]
     Active Substance: RISPERIDONE
     Dosage: 2 MG, BID
  11. CLOZAPINE. [Suspect]
     Active Substance: CLOZAPINE
     Indication: SCHIZOAFFECTIVE DISORDER
     Dosage: 25 MG, UNK
     Route: 048
  12. VALPROIC ACID. [Suspect]
     Active Substance: VALPROIC ACID
     Indication: SCHIZOAFFECTIVE DISORDER
     Dosage: UNK, BID

REACTIONS (14)
  - Hypotension [Unknown]
  - Cardiac arrest [Unknown]
  - Loss of consciousness [Unknown]
  - C-reactive protein increased [Unknown]
  - Sedation [Unknown]
  - Drug level increased [Unknown]
  - Troponin increased [Unknown]
  - Aspiration [Unknown]
  - Sepsis [Unknown]
  - Pneumonia [Unknown]
  - Myocardial necrosis marker increased [Unknown]
  - Atrial fibrillation [Unknown]
  - Arrhythmia [Unknown]
  - Salivary hypersecretion [Unknown]
